FAERS Safety Report 21159837 (Version 1)
Quarter: 2022Q3

REPORT INFORMATION
  Report Type: Spontaneous
  Country: US (occurrence: US)
  Receive Date: 20220802
  Receipt Date: 20220802
  Transmission Date: 20221026
  Serious: No
  Sender: FDA-Public Use
  Company Number: US-BRISTOL-MYERS SQUIBB COMPANY-2022-071345

PATIENT
  Age: 89 Year
  Sex: Male

DRUGS (1)
  1. REVLIMID [Suspect]
     Active Substance: LENALIDOMIDE
     Indication: Plasma cell myeloma
     Dosage: CAPSULE BY MOUTH ONCE DAILY 21 DAYS ON AND 7 DAYS OFF
     Route: 048
     Dates: start: 202201

REACTIONS (2)
  - White blood cell count decreased [Unknown]
  - Condition aggravated [Unknown]
